FAERS Safety Report 9045009 (Version 1)
Quarter: 2013Q1

REPORT INFORMATION
  Report Type: Report from Study
  Country: US (occurrence: US)
  Receive Date: 20130130
  Receipt Date: 20130130
  Transmission Date: 20140127
  Serious: No
  Sender: FDA-Public Use
  Company Number: US-ABBOTT-12P-163-0966952-00

PATIENT
  Age: 55 None
  Sex: Male

DRUGS (3)
  1. HUMIRA 40 MG/0.8 ML PEN [Suspect]
     Indication: PSORIATIC ARTHROPATHY
     Dates: start: 20120619, end: 201207
  2. HUMIRA 40 MG/0.8 ML PEN [Suspect]
     Dates: start: 20120619, end: 201207
  3. LEFLUNOMIDE [Concomitant]
     Indication: PSORIATIC ARTHROPATHY

REACTIONS (1)
  - Drug ineffective [Not Recovered/Not Resolved]
